FAERS Safety Report 13225850 (Version 1)
Quarter: 2017Q1

REPORT INFORMATION
  Report Type: Spontaneous
  Country: US (occurrence: US)
  Receive Date: 20170210
  Receipt Date: 20170210
  Transmission Date: 20170428
  Serious: Yes (Disabling)
  Sender: FDA-Public Use
  Company Number: None

PATIENT
  Age: 58 Year
  Sex: Female
  Weight: 102.1 kg

DRUGS (8)
  1. GABAPENTIN. [Suspect]
     Active Substance: GABAPENTIN
     Indication: NEURALGIA
     Dosage: ?          QUANTITY:90 TABLET(S);?
     Route: 048
     Dates: start: 20131031, end: 20161101
  2. MAGNESIUM OXIDE. [Concomitant]
     Active Substance: MAGNESIUM OXIDE
  3. CALCIUM D3 [Concomitant]
     Active Substance: CALCIUM\CHOLECALCIFEROL
  4. FEOSAL IRON [Concomitant]
  5. WARFARIN [Concomitant]
     Active Substance: WARFARIN
  6. LYRICA [Concomitant]
     Active Substance: PREGABALIN
  7. DARIFENACIN. [Concomitant]
     Active Substance: DARIFENACIN
  8. NORTRIPTYLINE [Concomitant]
     Active Substance: NORTRIPTYLINE

REACTIONS (3)
  - Speech disorder [None]
  - Dysphemia [None]
  - Therapy change [None]

NARRATIVE: CASE EVENT DATE: 20160601
